FAERS Safety Report 5877223-8 (Version None)
Quarter: 2008Q3

REPORT INFORMATION
  Report Type: 
  Country: None (occurrence: None)
  Receive Date: 20080910
  Receipt Date: 20080829
  Transmission Date: 20090109
  Serious: Yes (Other)
  Sender: FDA-Public Use
  Company Number: US-PFIZER INC-2008073261

PATIENT
  Sex: Female
  Weight: 58.1 kg

DRUGS (7)
  1. GEODON [Suspect]
     Indication: DEPRESSION
     Dates: start: 20080716
  2. EFFEXOR [Concomitant]
  3. LISINOPRIL AND HYDROCHLOROTHIAZIDE [Concomitant]
  4. STATINS [Concomitant]
  5. LIBRIUM [Concomitant]
  6. ZEGERID [Concomitant]
  7. TRAZODONE HCL [Concomitant]
     Dates: start: 20080701

REACTIONS (16)
  - ABDOMINAL PAIN UPPER [None]
  - ANOREXIA [None]
  - BLOOD PRESSURE DECREASED [None]
  - CONSTIPATION [None]
  - CONVULSION [None]
  - COUGH [None]
  - DYSARTHRIA [None]
  - HALLUCINATION [None]
  - HEADACHE [None]
  - MUSCLE TIGHTNESS [None]
  - MUSCULOSKELETAL STIFFNESS [None]
  - NIGHTMARE [None]
  - PSYCHOMOTOR HYPERACTIVITY [None]
  - SOMNOLENCE [None]
  - SPEECH DISORDER [None]
  - SUICIDAL IDEATION [None]
